FAERS Safety Report 7955789-1 (Version None)
Quarter: 2011Q4

REPORT INFORMATION
  Report Type: 
  Country: None (occurrence: None)
  Receive Date: 20111205
  Receipt Date: 20111128
  Transmission Date: 20120403
  Serious: Yes (Hospitalization, Other)
  Sender: FDA-Public Use
  Company Number: FR-BIOGENIDEC-2011BI000789

PATIENT
  Age: 58 Year
  Sex: Male
  Weight: 95 kg

DRUGS (5)
  1. ASPIRIN [Concomitant]
     Indication: CARDIOVASCULAR DISORDER
     Dates: start: 19950101
  2. CELIPROLOL [Concomitant]
     Indication: CARDIOVASCULAR DISORDER
     Dates: start: 20010101
  3. TYSABRI [Suspect]
     Indication: MULTIPLE SCLEROSIS
     Route: 042
     Dates: start: 20100204, end: 20110106
  4. EZETIMIBE [Concomitant]
     Route: 048
  5. LISINOPRIL [Concomitant]
     Indication: CARDIOVASCULAR DISORDER
     Dates: start: 20010101

REACTIONS (3)
  - RENAL CELL CARCINOMA [None]
  - PANCREATITIS ACUTE [None]
  - CHRONIC MYELOID LEUKAEMIA [None]
